FAERS Safety Report 22588974 (Version 2)
Quarter: 2023Q2

REPORT INFORMATION
  Report Type: Spontaneous
  Country: US (occurrence: US)
  Receive Date: 20230612
  Receipt Date: 20230626
  Transmission Date: 20230721
  Serious: Yes (Other)
  Sender: FDA-Public Use
  Company Number: US-TEVA-2023-US-2895388

PATIENT
  Age: 44 Year
  Sex: Male

DRUGS (2)
  1. AMOXICILLIN\CLAVULANIC ACID [Suspect]
     Active Substance: AMOXICILLIN\CLAVULANIC ACID
     Indication: Pneumonia
     Route: 065
  2. ALTEPLASE [Concomitant]
     Active Substance: ALTEPLASE
     Indication: Transient ischaemic attack
     Route: 065

REACTIONS (1)
  - Suspected drug-induced liver injury [Unknown]
